FAERS Safety Report 16328154 (Version 2)
Quarter: 2019Q2

REPORT INFORMATION
  Report Type: Spontaneous
  Country: FR (occurrence: FR)
  Receive Date: 20190518
  Receipt Date: 20190627
  Transmission Date: 20190711
  Serious: Yes (Other)
  Sender: FDA-Public Use
  Company Number: FR-AUROBINDO-AUR-APL-2017-42540

PATIENT

DRUGS (7)
  1. LEVOFLOXACIN FILMCOATED TABLET [Suspect]
     Active Substance: LEVOFLOXACIN
     Indication: OSTEITIS
     Dosage: 500 MG, BID
     Route: 042
  2. AMIKACIN SULFATE. [Suspect]
     Active Substance: AMIKACIN SULFATE
     Indication: OSTEITIS
     Dosage: 500 MG, TWO TIMES A DAY
     Route: 042
  3. AMIKACIN SULFATE. [Suspect]
     Active Substance: AMIKACIN SULFATE
     Dosage: 500 MILLIGRAM, ONCE A DAY
     Route: 065
  4. RIFAMPICIN [Suspect]
     Active Substance: RIFAMPIN
     Indication: OSTEITIS
     Dosage: UNK, TWO TIMES A DAY
     Route: 048
  5. LEVOFLOXACIN FILMCOATED TABLET [Suspect]
     Active Substance: LEVOFLOXACIN
     Dosage: 500 MG, BID
     Route: 048
  6. MEROPENEM 1000 MG [Suspect]
     Active Substance: MEROPENEM
     Indication: OSTEITIS
     Dosage: 1 G, FOUR TIMES/DAY
     Route: 042
  7. MEROPENEM 1000 MG [Suspect]
     Active Substance: MEROPENEM
     Dosage: 1 G, FOUR TIMES/DAY
     Route: 042

REACTIONS (5)
  - Skin hyperpigmentation [Recovered/Resolved with Sequelae]
  - Intentional product misuse [Unknown]
  - Product use in unapproved indication [Unknown]
  - Pigmentation disorder [Recovered/Resolved]
  - Skin discolouration [Recovered/Resolved]
